FAERS Safety Report 25874940 (Version 1)
Quarter: 2025Q4

REPORT INFORMATION
  Report Type: Spontaneous
  Country: US (occurrence: US)
  Receive Date: 20251002
  Receipt Date: 20251002
  Transmission Date: 20260117
  Serious: No
  Sender: BAUSCH AND LOMB
  Company Number: US-BAUSCHBL-2025BNL028988

PATIENT
  Sex: Female

DRUGS (4)
  1. LOTEPREDNOL ETABONATE [Suspect]
     Active Substance: LOTEPREDNOL ETABONATE
     Indication: Eye infection
     Dosage: ONLY ONCE TO BOTH EYES ON THE EVENING OF 18-SEP-2025
     Route: 047
     Dates: start: 20250918, end: 20250918
  2. LOTEPREDNOL ETABONATE [Suspect]
     Active Substance: LOTEPREDNOL ETABONATE
     Dosage: TO BE APPLIED TWICE A DAY TO BOTH EYES
     Route: 047
     Dates: start: 20250918
  3. ERYTHROMYCIN [Suspect]
     Active Substance: ERYTHROMYCIN
     Indication: Eye infection
     Route: 047
     Dates: start: 202501, end: 2025
  4. ERYTHROMYCIN [Suspect]
     Active Substance: ERYTHROMYCIN
     Dosage: QD
     Route: 047
     Dates: start: 202509

REACTIONS (3)
  - Eye irritation [Not Recovered/Not Resolved]
  - Ocular hyperaemia [Not Recovered/Not Resolved]
  - Drug ineffective [Unknown]

NARRATIVE: CASE EVENT DATE: 20250901
